FAERS Safety Report 5605394-7 (Version None)
Quarter: 2008Q1

REPORT INFORMATION
  Report Type: 
  Country: None (occurrence: None)
  Receive Date: 20080129
  Receipt Date: 20080116
  Transmission Date: 20080703
  Serious: Yes (Other)
  Sender: FDA-Public Use
  Company Number: US-PFIZER INC-2007096656

PATIENT
  Sex: Female
  Weight: 67.1 kg

DRUGS (32)
  1. CHANTIX [Suspect]
     Indication: SMOKING CESSATION THERAPY
  2. NEURONTIN [Concomitant]
  3. DOXEPIN HCL [Concomitant]
  4. PRILOSEC [Concomitant]
  5. PERCOCET [Concomitant]
  6. ZYRTEC [Concomitant]
  7. METFORMIN HCL [Concomitant]
  8. FENTANYL [Concomitant]
  9. COMBIVENT [Concomitant]
  10. NASACORT AQ [Concomitant]
  11. BUSPAR [Concomitant]
  12. TOPAMAX [Concomitant]
  13. SEROQUEL [Concomitant]
  14. REGLAN [Concomitant]
  15. ALBUTEROL SULFATE [Concomitant]
  16. CYMBALTA [Concomitant]
  17. PLAVIX [Concomitant]
  18. MECLIZINE HCL [Concomitant]
  19. IBUPROFEN [Concomitant]
  20. SKELAXIN [Concomitant]
  21. ATIVAN [Concomitant]
  22. ALBUTEROL [Concomitant]
  23. ADVAIR DISKUS 100/50 [Concomitant]
  24. CEPHALEXIN [Concomitant]
  25. POLYTRIM [Concomitant]
     Route: 047
  26. PROVERA [Concomitant]
  27. KLONOPIN [Concomitant]
  28. PAXIL [Concomitant]
  29. SIMVASTATIN [Concomitant]
     Indication: BLOOD CHOLESTEROL INCREASED
  30. LYRICA [Concomitant]
  31. PLAQUENIL [Concomitant]
  32. PRIMIDONE [Concomitant]

REACTIONS (11)
  - ANXIETY [None]
  - BACK INJURY [None]
  - DIZZINESS [None]
  - EPILEPSY [None]
  - FALL [None]
  - LUPUS-LIKE SYNDROME [None]
  - MEDICAL DEVICE COMPLICATION [None]
  - OSTEOARTHRITIS [None]
  - RHEUMATOID ARTHRITIS [None]
  - STRESS [None]
  - TREMOR [None]
